FAERS Safety Report 8917032 (Version 3)
Quarter: 2012Q4

REPORT INFORMATION
  Report Type: 
  Country: NO (occurrence: NO)
  Receive Date: 20121120
  Receipt Date: 20121210
  Transmission Date: 20130627
  Serious: Yes (Other)
  Sender: FDA-Public Use
  Company Number: NO-ASTRAZENECA-2012SE86134

PATIENT
  Age: 71 Year
  Sex: Male
  Weight: 99.7 kg

DRUGS (8)
  1. MARCAIN [Suspect]
     Indication: ANAESTHESIA
  2. MAREVAN [Concomitant]
  3. DIGITOXIN [Concomitant]
  4. EMCONCOR [Concomitant]
  5. FURIX/DIURAL [Concomitant]
  6. ATROVENT [Concomitant]
     Route: 055
  7. SYMBICORT [Concomitant]
     Dosage: 160/4.5 ug two times daily
     Route: 055
  8. ATACAND [Concomitant]
     Route: 048

REACTIONS (1)
  - Cauda equina syndrome [Recovering/Resolving]
